FAERS Safety Report 9245346 (Version 1)
Quarter: 2013Q1

REPORT INFORMATION
  Report Type: Spontaneous
  Country: US (occurrence: None)
  Receive Date: 20121123
  Receipt Date: 20121123
  Transmission Date: 20140127
  Serious: No
  Sender: FDA-Public Use
  Company Number: 358171

PATIENT
  Age: 47 Year
  Sex: Female

DRUGS (1)
  1. VICTOZA (LIRAGLUTIDE) SOLUTION FOR INJECTION 6MG/ML [Suspect]
     Indication: TYPE 2 DIABETES MELLITUS
     Dosage: 1.8MG, UNK, SUNCUTANEOUS?DURATION 365 DAYS

REACTIONS (3)
  - Injection site erythema [None]
  - Injection site pain [None]
  - Injection site swelling [None]
